FAERS Safety Report 17572847 (Version 1)
Quarter: 2020Q1

REPORT INFORMATION
  Report Type: Spontaneous
  Country: IT (occurrence: IT)
  Receive Date: 20200323
  Receipt Date: 20200323
  Transmission Date: 20200409
  Serious: Yes (Hospitalization)
  Sender: FDA-Public Use
  Company Number: IT-SHIRE-IT202010722

PATIENT

DRUGS (1)
  1. MESAVANCOL [Suspect]
     Active Substance: MESALAMINE
     Indication: INFLAMMATORY BOWEL DISEASE
     Dosage: 2400 MILLIGRAM, 1X/DAY:QD
     Route: 048
     Dates: start: 20170101

REACTIONS (2)
  - Swelling face [Not Recovered/Not Resolved]
  - Erythema [Not Recovered/Not Resolved]

NARRATIVE: CASE EVENT DATE: 20190620
